FAERS Safety Report 13247854 (Version 1)
Quarter: 2017Q1

REPORT INFORMATION
  Report Type: Report from Study
  Country: US (occurrence: US)
  Receive Date: 20170217
  Receipt Date: 20170217
  Transmission Date: 20170428
  Serious: Yes (Hospitalization)
  Sender: FDA-Public Use
  Company Number: US-ACTELION-A-US2015-127533

PATIENT
  Age: 56 Year
  Sex: Female
  Weight: 107.3 kg

DRUGS (5)
  1. SILDENAFIL. [Concomitant]
     Active Substance: SILDENAFIL
  2. ADCIRCA [Concomitant]
     Active Substance: TADALAFIL
  3. TRACLEER [Suspect]
     Active Substance: BOSENTAN
     Indication: PULMONARY ARTERIAL HYPERTENSION
     Dosage: 125 MG, BID
     Route: 048
     Dates: start: 20110705
  4. COUMADIN [Concomitant]
     Active Substance: WARFARIN SODIUM
  5. AMLODIPINE [Concomitant]
     Active Substance: AMLODIPINE BESYLATE

REACTIONS (18)
  - Cough [Unknown]
  - Oropharyngeal pain [Unknown]
  - Rales [Unknown]
  - Drug dose omission [Unknown]
  - Pulmonary arterial pressure increased [Unknown]
  - Chest pain [Unknown]
  - Bronchitis [Not Recovered/Not Resolved]
  - Syncope [Unknown]
  - Oxygen saturation decreased [Unknown]
  - Dyspnoea [Unknown]
  - Weight increased [Unknown]
  - Peripheral swelling [Unknown]
  - Pulmonary oedema [Unknown]
  - Dysphonia [Unknown]
  - Influenza [Unknown]
  - Gait disturbance [Unknown]
  - Fatigue [Unknown]
  - Sneezing [Unknown]
